FAERS Safety Report 6138929-9 (Version None)
Quarter: 2009Q1

REPORT INFORMATION
  Report Type: 
  Country: None (occurrence: None)
  Receive Date: 20090331
  Receipt Date: 20090325
  Transmission Date: 20090719
  Serious: Yes (Other)
  Sender: FDA-Public Use
  Company Number: IT-B.I. PHARMACEUTICALS,INC./RIDGEFIELD-2009-DE-02684BY

PATIENT
  Sex: Male

DRUGS (1)
  1. TELMISARTAN [Suspect]
     Indication: HYPOLIPIDAEMIA
     Dosage: 40MG
     Route: 048
     Dates: start: 20090306, end: 20090310

REACTIONS (4)
  - DIARRHOEA [None]
  - FATIGUE [None]
  - HYPERTENSION [None]
  - LOSS OF CONSCIOUSNESS [None]
